FAERS Safety Report 9834585 (Version 1)
Quarter: 2014Q1

REPORT INFORMATION
  Report Type: Spontaneous
  Country: GB (occurrence: GB)
  Receive Date: 20140122
  Receipt Date: 20140122
  Transmission Date: 20141002
  Serious: Yes (Life-Threatening)
  Sender: FDA-Public Use
  Company Number: GB-PFIZER INC-2014016741

PATIENT
  Age: 41 Year
  Sex: Female
  Weight: 50.6 kg

DRUGS (6)
  1. GABAPENTIN [Suspect]
     Indication: PAIN MANAGEMENT
     Dosage: 100 MG, 1X/DAY
     Route: 048
     Dates: start: 20131212, end: 20131231
  2. AMITRIPTYLINE [Concomitant]
     Indication: PAIN MANAGEMENT
     Dosage: 10 MG, 1X/DAY
     Dates: start: 20131223, end: 20131231
  3. DIAZEPAM [Concomitant]
     Indication: MUSCLE SPASMS
     Dosage: 2 MG ONCE DAILY (1-2 AS REQUIRED)
     Dates: start: 20131223
  4. TERBUTALINE [Concomitant]
     Dosage: 500 UG, UNK
  5. BUDESONIDE [Concomitant]
     Dosage: 200 UG, UNK
  6. SUMATRIPTAN [Concomitant]
     Dosage: 100 MG, AS NEEDED

REACTIONS (6)
  - Neuroleptic malignant syndrome [Recovering/Resolving]
  - Hyperhidrosis [Recovering/Resolving]
  - Musculoskeletal stiffness [Recovering/Resolving]
  - Autonomic nervous system imbalance [Recovering/Resolving]
  - Blood creatine phosphokinase increased [Recovering/Resolving]
  - Acute psychosis [Recovering/Resolving]
